FAERS Safety Report 14843281 (Version 1)
Quarter: 2018Q2

REPORT INFORMATION
  Report Type: Spontaneous
  Country: CN (occurrence: CN)
  Receive Date: 20180503
  Receipt Date: 20180503
  Transmission Date: 20180711
  Serious: Yes (Other)
  Sender: FDA-Public Use
  Company Number: CN-ELI_LILLY_AND_COMPANY-CN201804011527

PATIENT
  Age: 73 Year
  Sex: Female
  Weight: 62 kg

DRUGS (5)
  1. PROZAC [Interacting]
     Active Substance: FLUOXETINE HYDROCHLORIDE
     Dosage: 0.5 DF, DAILY
     Route: 048
  2. PLAVIX [Interacting]
     Active Substance: CLOPIDOGREL BISULFATE
     Indication: PRODUCT USED FOR UNKNOWN INDICATION
     Dosage: UNK, UNKNOWN
     Route: 065
  3. PROZAC [Interacting]
     Active Substance: FLUOXETINE HYDROCHLORIDE
     Dosage: 1 DF, EVERY OTHER DAY
     Route: 048
  4. CLOPIDOGREL [Concomitant]
     Active Substance: CLOPIDOGREL BISULFATE
     Indication: PRODUCT USED FOR UNKNOWN INDICATION
  5. PROZAC [Suspect]
     Active Substance: FLUOXETINE HYDROCHLORIDE
     Indication: DEPRESSION
     Dosage: 1 DF, DAILY
     Route: 048
     Dates: start: 2004

REACTIONS (30)
  - Cholecystitis chronic [Unknown]
  - Rhinitis allergic [Unknown]
  - Osteoporosis [Unknown]
  - Macular degeneration [Unknown]
  - Hypertension [Unknown]
  - Carotid artery occlusion [Unknown]
  - Ear disorder [Unknown]
  - Osteoarthritis [Unknown]
  - Wrong technique in product usage process [Unknown]
  - Cognitive disorder [Unknown]
  - Dysuria [Not Recovered/Not Resolved]
  - Sjogren^s syndrome [Unknown]
  - Spinal osteoarthritis [Unknown]
  - Anxiety disorder [Unknown]
  - Body height decreased [Unknown]
  - Hyperhidrosis [Not Recovered/Not Resolved]
  - Chronic gastritis [Unknown]
  - Intervertebral disc protrusion [Unknown]
  - Drug interaction [Unknown]
  - Optic atrophy [Unknown]
  - Polyuria [Unknown]
  - Pyelonephritis chronic [Unknown]
  - Asthma [Unknown]
  - Gastrointestinal inflammation [Unknown]
  - Cataract [Unknown]
  - Asthenia [Not Recovered/Not Resolved]
  - Vaginal haemorrhage [Not Recovered/Not Resolved]
  - Cerebral arteriosclerosis [Unknown]
  - Dyspepsia [Unknown]
  - Cerebral infarction [Unknown]

NARRATIVE: CASE EVENT DATE: 2008
